FAERS Safety Report 8451191-7 (Version None)
Quarter: 2012Q2

REPORT INFORMATION
  Report Type: 
  Country: None (occurrence: None)
  Receive Date: 20120620
  Receipt Date: 20120405
  Transmission Date: 20120825
  Serious: No
  Sender: FDA-Public Use
  Company Number: US-VERTEX PHARMACEUTICALS INC.-AE-2011-003807

PATIENT
  Sex: Female
  Weight: 87.622 kg

DRUGS (5)
  1. CIPROFLOXACIN HCL [Concomitant]
     Indication: PNEUMONIA
     Route: 048
     Dates: start: 20111110, end: 20111119
  2. XANAX [Concomitant]
     Indication: ANXIETY
     Route: 048
  3. INCIVEK [Suspect]
     Indication: HEPATITIS C
     Route: 048
     Dates: start: 20110819, end: 20111111
  4. PEGINTERFERON ALFA-2A [Concomitant]
     Indication: HEPATITIS C
     Dates: start: 20110819, end: 20120329
  5. RIBAVIRIN [Concomitant]
     Indication: HEPATITIS C
     Route: 048
     Dates: start: 20110819, end: 20120329

REACTIONS (9)
  - DRUG DOSE OMISSION [None]
  - ANXIETY [None]
  - PAIN [None]
  - ABDOMINAL DISTENSION [None]
  - ASTHENIA [None]
  - IRRITABILITY [None]
  - DECREASED APPETITE [None]
  - FATIGUE [None]
  - HYPERHIDROSIS [None]
